FAERS Safety Report 16314595 (Version 2)
Quarter: 2019Q4

REPORT INFORMATION
  Report Type: Other
  Country: PT (occurrence: PT)
  Receive Date: 20190515
  Receipt Date: 20191112
  Transmission Date: 20200122
  Serious: Yes (Death, Life-Threatening, Hospitalization, Other)
  Sender: FDA-Public Use
  Company Number: PT-ASPEN-GLO2019PT004601

PATIENT
  Age: 49 Year
  Sex: Female

DRUGS (12)
  1. CYCLOPHOSPHAMIDE. [Suspect]
     Active Substance: CYCLOPHOSPHAMIDE
     Indication: ACUTE LYMPHOCYTIC LEUKAEMIA
     Dosage: HIGH DOSE
     Route: 065
  2. TIGECYCLINE. [Suspect]
     Active Substance: TIGECYCLINE
     Dosage: 100MG Q12
  3. COLISTIN [Suspect]
     Active Substance: COLISTIN
     Dosage: MAINTENANCE DOSE, 4 MU Q12
     Route: 042
     Dates: start: 20170702
  4. DOXORUBICIN [Suspect]
     Active Substance: DOXORUBICIN
     Indication: ACUTE LYMPHOCYTIC LEUKAEMIA
     Dosage: HIGH DOSE
     Route: 065
  5. COLISTIN [Suspect]
     Active Substance: COLISTIN
     Indication: KLEBSIELLA INFECTION
     Dosage: LOADING DOSE
     Route: 042
     Dates: start: 20170627
  6. COLISTIN [Suspect]
     Active Substance: COLISTIN
     Dosage: 5 MU Q12
     Route: 042
     Dates: start: 20170712
  7. MEROPENEM. [Suspect]
     Active Substance: MEROPENEM
     Dosage: DOSE INCREASED 2 G, Q8H IN A 3-H EXTENDED INFUSION
     Route: 065
     Dates: start: 20170629
  8. TIGECYCLINE. [Suspect]
     Active Substance: TIGECYCLINE
     Indication: KLEBSIELLA INFECTION
     Dosage: LOADING DOSE
     Route: 065
  9. AMIKACIN SULFATE. [Suspect]
     Active Substance: AMIKACIN SULFATE
     Indication: KLEBSIELLA INFECTION
     Dosage: 1 G, Q24
     Route: 065
     Dates: start: 20170627
  10. VINCRISTINE SULFATE. [Suspect]
     Active Substance: VINCRISTINE SULFATE
     Indication: ACUTE LYMPHOCYTIC LEUKAEMIA
     Dosage: HIGH DOSE
     Route: 065
  11. DEXAMETHASONE. [Suspect]
     Active Substance: DEXAMETHASONE
     Indication: ACUTE LYMPHOCYTIC LEUKAEMIA
     Dosage: HIGH DOSE
     Route: 065
  12. MEROPENEM. [Suspect]
     Active Substance: MEROPENEM
     Indication: KLEBSIELLA INFECTION
     Dosage: 1 G, Q8H
     Route: 065
     Dates: start: 20170627

REACTIONS (9)
  - Neutropenic colitis [Fatal]
  - Multiple organ dysfunction syndrome [Fatal]
  - Gastrointestinal inflammation [Not Recovered/Not Resolved]
  - Osteomyelitis bacterial [Fatal]
  - Klebsiella bacteraemia [Fatal]
  - Klebsiella infection [Fatal]
  - Drug resistance [Fatal]
  - Neutropenic sepsis [Fatal]
  - Neutropenia [Fatal]

NARRATIVE: CASE EVENT DATE: 2017
